FAERS Safety Report 5804006-7 (Version None)
Quarter: 2008Q3

REPORT INFORMATION
  Report Type: 
  Country: None (occurrence: None)
  Receive Date: 20080703
  Receipt Date: 20080618
  Transmission Date: 20090109
  Serious: Yes (Death)
  Sender: FDA-Public Use
  Company Number: JPI-P-003966

PATIENT
  Age: 54 Year
  Sex: Female

DRUGS (4)
  1. XYREM [Suspect]
     Indication: FIBROMYALGIA
     Dosage: 9 GM (4.5 MG, 2 IN 1 D), ORAL; 12 GM (6 GM, 2 IN 1 D), ORAL
     Route: 048
     Dates: start: 20060201, end: 20080101
  2. XYREM [Suspect]
     Indication: PAIN
     Dosage: 9 GM (4.5 MG, 2 IN 1 D), ORAL; 12 GM (6 GM, 2 IN 1 D), ORAL
     Route: 048
     Dates: start: 20060201, end: 20080101
  3. XYREM [Suspect]
     Indication: FIBROMYALGIA
     Dosage: 9 GM (4.5 MG, 2 IN 1 D), ORAL; 12 GM (6 GM, 2 IN 1 D), ORAL
     Route: 048
     Dates: start: 20080101
  4. XYREM [Suspect]
     Indication: PAIN
     Dosage: 9 GM (4.5 MG, 2 IN 1 D), ORAL; 12 GM (6 GM, 2 IN 1 D), ORAL
     Route: 048
     Dates: start: 20080101

REACTIONS (1)
  - DEATH [None]
